FAERS Safety Report 7469467-9 (Version None)
Quarter: 2011Q2

REPORT INFORMATION
  Report Type: 
  Country: None (occurrence: None)
  Receive Date: 20110429
  Receipt Date: 20110415
  Transmission Date: 20111010
  Serious: Yes (Other)
  Sender: FDA-Public Use
  Company Number: 2011AT000138

PATIENT
  Age: 61 Year
  Sex: Male

DRUGS (1)
  1. EDEX [Suspect]
     Indication: ERECTILE DYSFUNCTION
     Dosage: 10 UG;BIW;ICAN
     Route: 017
     Dates: start: 20090101

REACTIONS (6)
  - INJECTION RELATED REACTION [None]
  - DRUG INEFFECTIVE [None]
  - BURNING SENSATION [None]
  - DRUG ADMINISTERED AT INAPPROPRIATE SITE [None]
  - PENILE CURVATURE [None]
  - PENILE NECROSIS [None]
